FAERS Safety Report 7138371-8 (Version None)
Quarter: 2010Q4

REPORT INFORMATION
  Report Type: 
  Country: None (occurrence: None)
  Receive Date: 20101118
  Receipt Date: 20101102
  Transmission Date: 20110411
  Serious: Yes (Other)
  Sender: FDA-Public Use
  Company Number: ACO_02918_2010

PATIENT
  Sex: Female

DRUGS (1)
  1. TIZANIDINE 4MG TABLETS (4 MG, 4 MG) [Suspect]
     Indication: MUSCLE SPASTICITY
     Dosage: (4 MG, AT  BEDTIME), (2 MG)

REACTIONS (5)
  - DRUG EFFECT DECREASED [None]
  - LOSS OF CONSCIOUSNESS [None]
  - PRODUCT SUBSTITUTION ISSUE [None]
  - SOMNOLENCE [None]
  - THERAPY REGIMEN CHANGED [None]
